FAERS Safety Report 11932241 (Version 1)
Quarter: 2016Q1

REPORT INFORMATION
  Report Type: Spontaneous
  Country: DE (occurrence: DE)
  Receive Date: 20160120
  Receipt Date: 20160120
  Transmission Date: 20160526
  Serious: Yes (Other)
  Sender: FDA-Public Use
  Company Number: DE-PFIZER INC-2016019896

PATIENT
  Age: 63 Year
  Sex: Female

DRUGS (5)
  1. LYRICA [Suspect]
     Active Substance: PREGABALIN
     Dosage: DAY 1 AND 2: 75 MG, 2X/DAY
  2. LYRICA [Suspect]
     Active Substance: PREGABALIN
     Dosage: ON THIRD DAY: 75 MG, 3X/DAY
  3. ALPRAZOLAM. [Suspect]
     Active Substance: ALPRAZOLAM
     Dosage: UNK
  4. TAVOR (LORAZEPAM) [Suspect]
     Active Substance: LORAZEPAM
     Dosage: 1.0 MG, UNK
     Route: 042
  5. LYRICA [Suspect]
     Active Substance: PREGABALIN
     Dosage: ON FOURTH DAY: 75 MG, 2X/DAY

REACTIONS (8)
  - Mental disorder [Unknown]
  - Disorientation [Unknown]
  - Blood pressure increased [Unknown]
  - Restlessness [Unknown]
  - Muscle spasms [Unknown]
  - Drug withdrawal syndrome [Unknown]
  - Seizure [Unknown]
  - Dyskinesia [Unknown]
